FAERS Safety Report 21493364 (Version 1)
Quarter: 2022Q4

REPORT INFORMATION
  Report Type: Spontaneous
  Country: US (occurrence: None)
  Receive Date: 20221021
  Receipt Date: 20221021
  Transmission Date: 20230112
  Serious: Yes (Other)
  Sender: FDA-Public Use
  Company Number: None

PATIENT
  Age: 61 Year
  Sex: Female

DRUGS (1)
  1. TAGRISSO [Suspect]
     Active Substance: OSIMERTINIB
     Dosage: FREQUENCY : DAILY;?
     Route: 048
     Dates: start: 20220906, end: 20221007

REACTIONS (7)
  - Chest pain [None]
  - Asthenia [None]
  - Blood pressure increased [None]
  - Pyrexia [None]
  - Chills [None]
  - Dyspnoea [None]
  - Pneumonitis [None]

NARRATIVE: CASE EVENT DATE: 20220909
